FAERS Safety Report 10469322 (Version 1)
Quarter: 2014Q3

REPORT INFORMATION
  Report Type: Spontaneous
  Country: US (occurrence: None)
  Receive Date: 20140903
  Receipt Date: 20140903
  Transmission Date: 20150326
  Serious: Yes (Other)
  Sender: FDA-Public Use
  Company Number: 1000065708

PATIENT
  Age: 24 Year
  Sex: Male

DRUGS (2)
  1. RISPERDAL [Suspect]
     Active Substance: RISPERIDONE
     Indication: SCHIZOPHRENIA
     Dates: end: 201402
  2. CELEXA [Suspect]
     Active Substance: CITALOPRAM HYDROBROMIDE
     Indication: DEPRESSION
     Dates: start: 201401, end: 201402

REACTIONS (7)
  - Breast mass [None]
  - Heart rate decreased [None]
  - Hot flush [None]
  - Pyrexia [None]
  - Musculoskeletal stiffness [None]
  - Hyperhidrosis [None]
  - Weight increased [None]

NARRATIVE: CASE EVENT DATE: 201401
